FAERS Safety Report 13756734 (Version 1)
Quarter: 2017Q3

REPORT INFORMATION
  Report Type: Spontaneous
  Country: US (occurrence: US)
  Receive Date: 20170714
  Receipt Date: 20170714
  Transmission Date: 20171127
  Serious: Yes (Other)
  Sender: FDA-Public Use
  Company Number: US-TARO-2017TAR00527

PATIENT
  Age: 77 Year
  Sex: Female
  Weight: 68.27 kg

DRUGS (2)
  1. GENERIC LIPITOR [Concomitant]
     Active Substance: ATORVASTATIN CALCIUM
     Dosage: 10 MG, EVERY 48 HOURS
  2. IMIQUIMOD CREAM 5% [Suspect]
     Active Substance: IMIQUIMOD
     Indication: NEOPLASM MALIGNANT
     Dosage: UNK UNK, ONCE A DAY AT NIGHT
     Route: 061
     Dates: start: 20170613, end: 20170614

REACTIONS (16)
  - Eyelid disorder [Unknown]
  - Skin lesion [Not Recovered/Not Resolved]
  - Ocular hyperaemia [Recovering/Resolving]
  - Insomnia [Unknown]
  - Inappropriate schedule of drug administration [Recovered/Resolved]
  - Application site pain [Not Recovered/Not Resolved]
  - Eye contusion [Not Recovered/Not Resolved]
  - Drug administered at inappropriate site [Recovered/Resolved]
  - Application site streaking [Not Recovered/Not Resolved]
  - Application site pruritus [Not Recovered/Not Resolved]
  - Accidental exposure to product [Recovered/Resolved]
  - Skin discolouration [Not Recovered/Not Resolved]
  - Lacrimation increased [Not Recovered/Not Resolved]
  - Vision blurred [Not Recovered/Not Resolved]
  - Application site erythema [Not Recovered/Not Resolved]
  - Application site haemorrhage [Recovered/Resolved]

NARRATIVE: CASE EVENT DATE: 2017
